FAERS Safety Report 9787164 (Version 1)
Quarter: 2013Q4

REPORT INFORMATION
  Report Type: Report from Study
  Country: US (occurrence: US)
  Receive Date: 20131228
  Receipt Date: 20131228
  Transmission Date: 20140711
  Serious: No
  Sender: FDA-Public Use
  Company Number: US-ALEXION-A201304139

PATIENT
  Age: 22 Year
  Sex: Female
  Weight: 67.57 kg

DRUGS (4)
  1. SOLIRIS [Suspect]
     Indication: HAEMOLYTIC URAEMIC SYNDROME
     Dosage: 900 MG,QW
     Dates: start: 20130318
  2. SOLIRIS [Suspect]
     Dosage: 1200 MG, Q2W
     Dates: start: 20130415
  3. CLONIDINE [Concomitant]
     Indication: PRODUCT USED FOR UNKNOWN INDICATION
     Dosage: 0.1 MG, BID
     Dates: start: 20130904
  4. COMPAZINE [Concomitant]
     Indication: PRODUCT USED FOR UNKNOWN INDICATION
     Dosage: 10 MG, PRN
     Dates: start: 20130326

REACTIONS (3)
  - Malaise [Recovered/Resolved]
  - Seasonal allergy [Recovered/Resolved]
  - Nasopharyngitis [Recovered/Resolved]
